FAERS Safety Report 24337677 (Version 1)
Quarter: 2024Q3

REPORT INFORMATION
  Report Type: Spontaneous
  Country: JP (occurrence: JP)
  Receive Date: 20240919
  Receipt Date: 20240919
  Transmission Date: 20241017
  Serious: No
  Sender: ROCHE
  Company Number: JP-CHUGAI-2023045197

PATIENT
  Age: 74 Year
  Sex: Male

DRUGS (2)
  1. TAMIFLU [Suspect]
     Active Substance: OSELTAMIVIR PHOSPHATE
     Indication: Influenza
     Dosage: UNK
     Route: 048
     Dates: start: 20231216, end: 20231220
  2. SHAKUYAKUKANZOTO [Suspect]
     Active Substance: HERBALS
     Indication: Hiccups
     Dosage: UNK
     Route: 065
     Dates: start: 202312, end: 202312

REACTIONS (2)
  - Hiccups [Recovered/Resolved]
  - Malaise [Recovered/Resolved]

NARRATIVE: CASE EVENT DATE: 20231201
